FAERS Safety Report 25271465 (Version 1)
Quarter: 2025Q2

REPORT INFORMATION
  Report Type: Report from Study
  Country: CA (occurrence: CA)
  Receive Date: 20250506
  Receipt Date: 20250506
  Transmission Date: 20250716
  Serious: Yes (Death, Hospitalization, Other)
  Sender: TOLMAR
  Company Number: TLM-2025-01115(0)

PATIENT
  Age: 76 Year
  Sex: Male

DRUGS (3)
  1. ELIGARD [Suspect]
     Active Substance: LEUPROLIDE ACETATE
     Indication: Prostate cancer
     Dosage: 45 MG, EVERY 6 MONTHS
     Route: 058
     Dates: start: 20191212
  2. ELIGARD [Suspect]
     Active Substance: LEUPROLIDE ACETATE
     Dosage: 45 MG, EVERY 6 MONTHS
     Route: 058
     Dates: start: 20240824
  3. ELIGARD [Suspect]
     Active Substance: LEUPROLIDE ACETATE

REACTIONS (6)
  - Death [Fatal]
  - Blindness [Not Recovered/Not Resolved]
  - Oxygen saturation decreased [Unknown]
  - Prostate cancer [Not Recovered/Not Resolved]
  - Mobility decreased [Unknown]
  - Pyrexia [Unknown]
